FAERS Safety Report 9912639 (Version 1)
Quarter: 2014Q1

REPORT INFORMATION
  Report Type: Spontaneous
  Country: US (occurrence: None)
  Receive Date: 20140212
  Receipt Date: 20140212
  Transmission Date: 20141002
  Serious: Yes (Hospitalization)
  Sender: FDA-Public Use
  Company Number: FK201400355

PATIENT
  Age: 53 Year
  Sex: 0

DRUGS (7)
  1. SUMATRIPTAN [Suspect]
     Indication: MIGRAINE
     Route: 058
     Dates: start: 2004
  2. ALMOTRIPTAN (ALMOTRIPTAN) [Suspect]
     Indication: MIGRAINE
     Route: 048
  3. PROPRANOLOL [Concomitant]
  4. MAGNESIUM [Concomitant]
  5. RIBOFLAVIN [Concomitant]
  6. NAPROXEN SODIUM [Concomitant]
  7. NADOLOL [Concomitant]

REACTIONS (11)
  - Torsade de pointes [None]
  - Hypoaesthesia [None]
  - Left atrial dilatation [None]
  - Mitral valve prolapse [None]
  - Diastolic dysfunction [None]
  - Ejection fraction decreased [None]
  - Hyperhidrosis [None]
  - Sinus bradycardia [None]
  - Arteriosclerosis coronary artery [None]
  - Prinzmetal angina [None]
  - Migraine [None]
